FAERS Safety Report 4910955-4 (Version None)
Quarter: 2006Q1

REPORT INFORMATION
  Report Type: 
  Country: None (occurrence: None)
  Receive Date: 20060214
  Receipt Date: 20051005
  Transmission Date: 20060701
  Serious: Yes (Hospitalization)
  Sender: FDA-Public Use
  Company Number: ZA-MERCK-0602ZAF00009

PATIENT
  Age: 76 Year
  Sex: Female
  Weight: 69 kg

DRUGS (1)
  1. VIOXX [Suspect]
     Indication: RHEUMATOID ARTHRITIS
     Route: 048
     Dates: start: 20010101, end: 20040101

REACTIONS (5)
  - ACUTE MYOCARDIAL INFARCTION [None]
  - CATARACT [None]
  - FATIGUE [None]
  - THROMBOSIS [None]
  - TOE DEFORMITY [None]
